FAERS Safety Report 25864534 (Version 1)
Quarter: 2025Q3

REPORT INFORMATION
  Report Type: Spontaneous
  Country: KR (occurrence: KR)
  Receive Date: 20250930
  Receipt Date: 20250930
  Transmission Date: 20251021
  Serious: Yes (Hospitalization)
  Sender: SAMSUNG BIOEPIS
  Company Number: KR-SAMSUNG BIOEPIS-SB-2025-32123

PATIENT
  Age: 78 Year
  Sex: Female
  Weight: 32 kg

DRUGS (43)
  1. TRASTUZUMAB [Suspect]
     Active Substance: TRASTUZUMAB
     Indication: HER2 positive biliary tract cancer
     Route: 042
     Dates: start: 20240422
  2. NIVOLUMAB [Suspect]
     Active Substance: NIVOLUMAB
     Indication: HER2 positive biliary tract cancer
     Route: 042
     Dates: start: 20240315
  3. GEMCITABINE [Suspect]
     Active Substance: GEMCITABINE
     Indication: HER2 positive biliary tract cancer
     Dosage: D1, D8;
     Route: 042
     Dates: start: 20240315
  4. CISPLATIN [Suspect]
     Active Substance: CISPLATIN
     Indication: HER2 positive biliary tract cancer
     Dosage: D1, D8;
     Route: 042
     Dates: start: 20240315
  5. UNI C [Concomitant]
     Indication: Prophylaxis
     Dates: start: 20240321
  6. ROWACHOL [BORNEOL;CAMPHENE;CINEOLE;MENTHOL;MENTHONE;OLEA EUROPAEA;PINE [Concomitant]
     Indication: Prophylaxis
     Dates: start: 20231024
  7. DONG A GASTER [Concomitant]
     Indication: Prophylaxis
     Dates: start: 20240308
  8. Norzyme [Concomitant]
     Indication: Prophylaxis
     Dosage: CAPSULE;
     Dates: start: 20240308
  9. ACETAMINOPHEN\TRAMADOL [Concomitant]
     Active Substance: ACETAMINOPHEN\TRAMADOL
     Indication: Prophylaxis
     Dates: start: 20240308
  10. ACETAMINOPHEN\TRAMADOL [Concomitant]
     Active Substance: ACETAMINOPHEN\TRAMADOL
     Dates: start: 20240930
  11. ACETAMINOPHEN\TRAMADOL [Concomitant]
     Active Substance: ACETAMINOPHEN\TRAMADOL
     Dates: start: 20240912
  12. MAGNESIUM OXIDE [Concomitant]
     Active Substance: MAGNESIUM OXIDE
     Indication: Product used for unknown indication
     Dosage: CAPSULE;
     Dates: start: 20231027
  13. OFLOXACIN [Concomitant]
     Active Substance: OFLOXACIN
     Indication: Prophylaxis
     Dates: start: 20240313
  14. OLMESARTAN MEDOXOMIL [Concomitant]
     Active Substance: OLMESARTAN MEDOXOMIL
     Indication: Product used for unknown indication
     Dates: start: 20240315
  15. CARVEDILOL [Concomitant]
     Active Substance: CARVEDILOL
     Indication: Product used for unknown indication
     Dates: start: 20240318
  16. OXYCODONE HYDROCHLORIDE [Concomitant]
     Active Substance: OXYCODONE HYDROCHLORIDE
     Indication: Product used for unknown indication
     Dates: start: 20240321
  17. AKYNZEO [FOSNETUPITANT CHLORIDE HYDROCHLORIDE;PALONOSETRON HYDROCHLORI [Concomitant]
     Indication: Prophylaxis
     Dates: start: 20240321
  18. Yuhan Dexamethasone Disodium Phosphate [Concomitant]
     Indication: Prophylaxis
     Dates: start: 20240315
  19. TAMIPOOL [ASCORBIC ACID;BIOTIN;CYANOCOBALAMIN;DEXPANTHENOL;ERGOCALCIFE [Concomitant]
     Indication: Prophylaxis
     Dates: start: 20240321
  20. Chlorpheniramine Maleate Huons [Concomitant]
     Indication: Prophylaxis
     Dates: start: 20240422
  21. BANAN [Concomitant]
     Active Substance: CEFPODOXIME PROXETIL
     Indication: Product used for unknown indication
     Dates: start: 20240604
  22. CHLORHEXIDINE GLUCONATE [Concomitant]
     Active Substance: CHLORHEXIDINE GLUCONATE
     Indication: Product used for unknown indication
     Dates: start: 20240604
  23. HUMULIN R [Concomitant]
     Active Substance: INSULIN HUMAN
     Indication: Product used for unknown indication
     Dates: start: 20240611
  24. Daihan calcium gluconate [Concomitant]
     Indication: Product used for unknown indication
     Dates: start: 20240611
  25. Kasuwell [Concomitant]
     Indication: Product used for unknown indication
     Dates: start: 20240611
  26. CALCIUM POLYSTYRENE SULFONATE [Concomitant]
     Active Substance: CALCIUM POLYSTYRENE SULFONATE
     Indication: Product used for unknown indication
     Dates: start: 20240611
  27. Dulackhan easy [Concomitant]
     Indication: Product used for unknown indication
     Dates: start: 20240617
  28. Encover [Concomitant]
     Indication: Prophylaxis
     Dates: start: 20240626
  29. Flasinyl [Concomitant]
     Indication: Product used for unknown indication
     Dates: start: 20240626
  30. SMOFLIPID [Concomitant]
     Active Substance: FISH OIL\MEDIUM-CHAIN TRIGLYCERIDES\OLIVE OIL\SOYBEAN OIL
     Indication: Prophylaxis
     Dates: start: 20240626
  31. Myungmoon Methocarbamol [Concomitant]
     Indication: Product used for unknown indication
     Dates: start: 20240708
  32. Dicamax 1000 [Concomitant]
     Indication: Product used for unknown indication
     Dates: start: 20240718
  33. TRAZODONE HYDROCHLORIDE [Concomitant]
     Active Substance: TRAZODONE HYDROCHLORIDE
     Indication: Product used for unknown indication
     Dates: start: 20240730
  34. NUCYNTA ER [Concomitant]
     Active Substance: TAPENTADOL HYDROCHLORIDE
     Indication: Product used for unknown indication
     Dates: start: 20240325
  35. CHOLINE ALFOSCERATE [Concomitant]
     Active Substance: CHOLINE ALFOSCERATE
     Indication: Prophylaxis
     Dates: start: 20240718
  36. MYTONIN [BENZYDAMINE HYDROCHLORIDE] [Concomitant]
     Indication: Product used for unknown indication
     Dates: start: 20240718
  37. ULTRACET [Concomitant]
     Active Substance: ACETAMINOPHEN\TRAMADOL HYDROCHLORIDE
     Indication: Product used for unknown indication
     Dates: start: 20240813
  38. TRAMADOL HYDROCHLORIDE [Concomitant]
     Active Substance: TRAMADOL HYDROCHLORIDE
     Indication: Product used for unknown indication
     Dates: start: 20240912
  39. PROPACETAMOL HYDROCHLORIDE [Concomitant]
     Active Substance: PROPACETAMOL HYDROCHLORIDE
     Indication: Prophylaxis
     Dates: start: 20240912
  40. PROPACETAMOL HYDROCHLORIDE [Concomitant]
     Active Substance: PROPACETAMOL HYDROCHLORIDE
     Dates: start: 20240930
  41. Trisone Kit [Concomitant]
     Indication: Product used for unknown indication
     Dates: start: 20240910
  42. NORPIN [BUPRENORPHINE HYDROCHLORIDE] [Concomitant]
     Indication: Product used for unknown indication
     Dates: start: 20240912
  43. ACTOS [Concomitant]
     Active Substance: PIOGLITAZONE HYDROCHLORIDE
     Indication: Product used for unknown indication
     Dates: start: 20240912

REACTIONS (2)
  - Pyrexia [Recovering/Resolving]
  - Off label use [Unknown]

NARRATIVE: CASE EVENT DATE: 20241010
